FAERS Safety Report 9915250 (Version 1)
Quarter: 2014Q1

REPORT INFORMATION
  Report Type: Spontaneous
  Country: NO (occurrence: NO)
  Receive Date: 20140221
  Receipt Date: 20140221
  Transmission Date: 20141002
  Serious: Yes (Death, Other)
  Sender: FDA-Public Use
  Company Number: NO-BRISTOL-MYERS SQUIBB COMPANY-20137220

PATIENT
  Age: 73 Year
  Sex: Female

DRUGS (7)
  1. ELIQUIS [Suspect]
     Indication: ATRIAL FIBRILLATION
     Dosage: LAST DOSE 12-JAN-2014
     Route: 048
     Dates: start: 20131025
  2. ALBYL-E [Interacting]
     Indication: MYOCARDIAL ISCHAEMIA
     Dosage: LAST DOSE 12-JAN-2014
     Route: 048
  3. INEGY [Concomitant]
     Indication: HYPERCHOLESTEROLAEMIA
     Dosage: 40 MG + 10 MG
     Route: 048
  4. LEVAXIN [Concomitant]
     Indication: HYPOTHYROIDISM
     Dosage: UNKNOWN DOSE
     Route: 048
  5. LOSARTAN [Concomitant]
     Indication: HYPERTENSION
     Route: 048
  6. KALEORID [Concomitant]
     Indication: HYPOKALAEMIA
     Route: 048
  7. ISOSORBIDE MONONITRATE [Concomitant]
     Indication: ANGINA PECTORIS
     Dosage: OD.
     Route: 048

REACTIONS (2)
  - Cerebral haemorrhage [Fatal]
  - Drug interaction [Unknown]
